FAERS Safety Report 10881311 (Version 2)
Quarter: 2015Q1

REPORT INFORMATION
  Report Type: Spontaneous
  Country: IN (occurrence: IN)
  Receive Date: 20150303
  Receipt Date: 20150303
  Transmission Date: 20150721
  Serious: Yes (Death)
  Sender: FDA-Public Use
  Company Number: IN-CELGENE-IND-2015024584

PATIENT
  Age: 69 Year
  Sex: Female

DRUGS (3)
  1. THALIDOMIDE [Suspect]
     Active Substance: THALIDOMIDE
     Indication: ANGIOSARCOMA METASTATIC
     Route: 048
     Dates: start: 201309
  2. THALIDOMIDE [Suspect]
     Active Substance: THALIDOMIDE
     Indication: OFF LABEL USE
  3. CELECOXIB. [Concomitant]
     Active Substance: CELECOXIB
     Indication: BREAST CANCER
     Route: 065

REACTIONS (2)
  - Angiosarcoma metastatic [Fatal]
  - Therapeutic response unexpected [Unknown]
